FAERS Safety Report 18369301 (Version 2)
Quarter: 2022Q2

REPORT INFORMATION
  Report Type: Spontaneous
  Country: US (occurrence: US)
  Receive Date: 20201012
  Receipt Date: 20220620
  Transmission Date: 20220721
  Serious: Yes (Other)
  Sender: FDA-Public Use
  Company Number: US-SAARTEMIS-SAC202010050790

PATIENT
  Age: 53 Year
  Sex: Female

DRUGS (1)
  1. ZANTAC [Suspect]
     Active Substance: RANITIDINE HYDROCHLORIDE
     Indication: Dyspepsia
     Dosage: UNK, QD (75 MG150 MG)
     Dates: start: 201201, end: 201601

REACTIONS (2)
  - Colorectal cancer [Recovered/Resolved]
  - Breast cancer stage I [Unknown]

NARRATIVE: CASE EVENT DATE: 20170216
